FAERS Safety Report 10793293 (Version 1)
Quarter: 2015Q1

REPORT INFORMATION
  Report Type: Spontaneous
  Country: US (occurrence: US)
  Receive Date: 20150213
  Receipt Date: 20150213
  Transmission Date: 20150721
  Serious: Yes (Hospitalization)
  Sender: FDA-Public Use
  Company Number: US-JNJFOC-20150206352

PATIENT
  Age: 18 Year
  Sex: Male
  Weight: 79.83 kg

DRUGS (2)
  1. REMICADE [Suspect]
     Active Substance: INFLIXIMAB
     Indication: COLITIS ULCERATIVE
     Route: 042
     Dates: start: 2012, end: 2012
  2. REMICADE [Suspect]
     Active Substance: INFLIXIMAB
     Indication: CROHN^S DISEASE
     Route: 042
     Dates: start: 2012, end: 2012

REACTIONS (9)
  - Musculoskeletal stiffness [Recovered/Resolved]
  - Wound [Unknown]
  - Enterostomy [Unknown]
  - Weight decreased [Unknown]
  - Hypophagia [Recovered/Resolved]
  - Drug hypersensitivity [Recovered/Resolved]
  - Corneal reflex decreased [Recovered/Resolved]
  - Intestinal resection [Unknown]
  - Dyspnoea [Recovered/Resolved]

NARRATIVE: CASE EVENT DATE: 201205
